FAERS Safety Report 21982928 (Version 1)
Quarter: 2023Q1

REPORT INFORMATION
  Report Type: Report from Study
  Country: BR (occurrence: BR)
  Receive Date: 20230213
  Receipt Date: 20230213
  Transmission Date: 20230417
  Serious: Yes (Other)
  Sender: FDA-Public Use
  Company Number: BR-BIOGEN-2023BI01186633

PATIENT
  Age: 5 Year
  Sex: Female

DRUGS (1)
  1. SPINRAZA [Suspect]
     Active Substance: NUSINERSEN
     Indication: Spinal muscular atrophy
     Route: 050
     Dates: start: 201901

REACTIONS (5)
  - Scoliosis [Unknown]
  - Kyphosis [Unknown]
  - Hypertension [Unknown]
  - Proteinuria [Unknown]
  - Respiratory tract infection [Unknown]
